FAERS Safety Report 16776790 (Version 1)
Quarter: 2019Q3

REPORT INFORMATION
  Report Type: Spontaneous
  Country: US (occurrence: US)
  Receive Date: 20190716
  Receipt Date: 20190716
  Transmission Date: 20191005
  Serious: Yes (Hospitalization)
  Sender: FDA-Public Use
  Company Number: None

PATIENT
  Age: 80 Year
  Sex: Female

DRUGS (2)
  1. AFINITOR [Suspect]
     Active Substance: EVEROLIMUS
     Route: 048
     Dates: start: 201903
  2. EXEMESTANE. [Concomitant]
     Active Substance: EXEMESTANE

REACTIONS (4)
  - Constipation [None]
  - Memory impairment [None]
  - Dizziness [None]
  - Liver disorder [None]

NARRATIVE: CASE EVENT DATE: 20190616
